FAERS Safety Report 9235637 (Version 2)
Quarter: 2013Q3

REPORT INFORMATION
  Report Type: Report from Study
  Country: VE (occurrence: VE)
  Receive Date: 20130417
  Receipt Date: 20130828
  Transmission Date: 20140515
  Serious: Yes (Death, Other)
  Sender: FDA-Public Use
  Company Number: VE-ABBOTT-13P-178-1076139-00

PATIENT
  Age: 79 Year
  Sex: Male
  Weight: 53 kg

DRUGS (3)
  1. HUMIRA [Suspect]
     Indication: RHEUMATOID ARTHRITIS
     Route: 058
     Dates: start: 20110829, end: 201209
  2. METHOTREXATE [Concomitant]
     Indication: PRODUCT USED FOR UNKNOWN INDICATION
  3. NEBILET [Concomitant]
     Indication: HYPERTENSION

REACTIONS (2)
  - Respiratory arrest [Fatal]
  - Lung neoplasm malignant [Not Recovered/Not Resolved]
